FAERS Safety Report 18898907 (Version 1)
Quarter: 2021Q1

REPORT INFORMATION
  Report Type: Spontaneous
  Country: US (occurrence: US)
  Receive Date: 20210215
  Receipt Date: 20210215
  Transmission Date: 20210420
  Serious: Yes (Hospitalization)
  Sender: FDA-Public Use
  Company Number: None

PATIENT
  Age: 69 Year
  Sex: Female

DRUGS (7)
  1. PREDNISONE. [Concomitant]
     Active Substance: PREDNISONE
  2. ZYLOPRIM [Concomitant]
     Active Substance: ALLOPURINOL
  3. TADALAFIL. [Suspect]
     Active Substance: TADALAFIL
     Indication: AORTIC STENOSIS
     Route: 048
     Dates: start: 20181111
  4. TRAMADOL. [Concomitant]
     Active Substance: TRAMADOL
  5. TRADJENTA [Concomitant]
     Active Substance: LINAGLIPTIN
  6. ALBUTEROL. [Concomitant]
     Active Substance: ALBUTEROL
  7. PROTONIX [Concomitant]
     Active Substance: PANTOPRAZOLE SODIUM

REACTIONS (1)
  - Lung transplant [None]
